FAERS Safety Report 6190752-5 (Version None)
Quarter: 2009Q2

REPORT INFORMATION
  Report Type: 
  Country: None (occurrence: None)
  Receive Date: 20090514
  Receipt Date: 20090508
  Transmission Date: 20091009
  Serious: Yes (Hospitalization)
  Sender: FDA-Public Use
  Company Number: DE-EISAI INC.-E2020-04529-SPO-DE

PATIENT
  Age: 76 Year
  Sex: Female

DRUGS (3)
  1. ARICEPT [Suspect]
     Indication: DRUG USE FOR UNKNOWN INDICATION
     Route: 048
     Dates: start: 20090101, end: 20090101
  2. ARICEPT [Suspect]
     Dosage: UPTRITRATED
     Route: 048
     Dates: start: 20090101, end: 20090101
  3. ARICEPT [Suspect]
     Route: 048
     Dates: start: 20090101

REACTIONS (1)
  - RESPIRATORY DISORDER [None]
